FAERS Safety Report 4339314-2 (Version None)
Quarter: 2004Q2

REPORT INFORMATION
  Report Type: 
  Country: None (occurrence: None)
  Receive Date: 20040412
  Receipt Date: 19960520
  Transmission Date: 20050107
  Serious: Yes (Death, Life-Threatening)
  Sender: FDA-Public Use
  Company Number: WAES 96072432

PATIENT
  Age: 4 Day
  Sex: Female

DRUGS (4)
  1. INDOCIN I.V. [Suspect]
     Indication: PATENT DUCTUS ARTERIOSUS
     Dosage: 70 MICROGRAM, IV
     Route: 042
     Dates: start: 19960405, end: 19960405
  2. DOBUTAMINE [Concomitant]
  3. DOPAMINE HCL [Concomitant]
  4. GLUCOSE PREPARATION [Concomitant]

REACTIONS (3)
  - ANURIA [None]
  - HAEMORRHAGE INTRACRANIAL [None]
  - HYPERKALAEMIA [None]
